FAERS Safety Report 8710932 (Version 4)
Quarter: 2012Q4

REPORT INFORMATION
  Report Type: 
  Country: SE (occurrence: SE)
  Receive Date: 20120807
  Receipt Date: 20121026
  Transmission Date: 20130627
  Serious: Yes (Hospitalization)
  Sender: FDA-Public Use
  Company Number: SE-UCBSA-060885

PATIENT
  Age: 61 Year
  Sex: Female
  Weight: 44 kg

DRUGS (2)
  1. CIMZIA [Suspect]
     Indication: RHEUMATOID ARTHRITIS
     Dosage: WEEK 0.2.4(NO LOADING DOSE), NO. OF DOSES RECEIVED: 05
     Dates: start: 201205
  2. FURADANTIN [Concomitant]
     Indication: URINARY TRACT INFECTION
     Dates: start: 201207

REACTIONS (14)
  - Transient ischaemic attack [Recovered/Resolved]
  - Haemorrhage [Not Recovered/Not Resolved]
  - Breast pain [Not Recovered/Not Resolved]
  - Dry throat [Not Recovered/Not Resolved]
  - Haemoptysis [Not Recovered/Not Resolved]
  - Paraesthesia [Unknown]
  - Blood potassium decreased [Not Recovered/Not Resolved]
  - Oedema peripheral [Unknown]
  - Weight increased [Unknown]
  - Constipation [Not Recovered/Not Resolved]
  - Myalgia [Not Recovered/Not Resolved]
  - Depressed level of consciousness [Recovered/Resolved]
  - Urinary tract infection [Recovered/Resolved]
  - Drug effect decreased [Unknown]
